FAERS Safety Report 9380184 (Version 1)
Quarter: 2013Q3

REPORT INFORMATION
  Report Type: Spontaneous
  Country: US (occurrence: None)
  Receive Date: 20130701
  Receipt Date: 20130701
  Transmission Date: 20140515
  Serious: Yes (Other)
  Sender: FDA-Public Use
  Company Number: None

PATIENT
  Age: 51 Year
  Sex: Male
  Weight: 111.13 kg

DRUGS (2)
  1. AZITHROMYCIN [Suspect]
     Indication: INFLUENZA
     Route: 048
     Dates: start: 20130214, end: 20130214
  2. AZITHROMYCIN [Concomitant]

REACTIONS (8)
  - Vertigo [None]
  - Pain [None]
  - Gout [None]
  - Joint stiffness [None]
  - Gait disturbance [None]
  - Insomnia [None]
  - Delusional perception [None]
  - Abasia [None]
